FAERS Safety Report 8621706-4 (Version None)
Quarter: 2012Q3

REPORT INFORMATION
  Report Type: 
  Country: None (occurrence: None)
  Receive Date: 20120821
  Receipt Date: 20120821
  Transmission Date: 20120928
  Serious: Yes (Other)
  Sender: FDA-Public Use
  Company Number: None

PATIENT
  Age: 70 Year
  Sex: Female
  Weight: 59.8748 kg

DRUGS (1)
  1. METFORMIN HCL [Suspect]
     Indication: DIABETES MELLITUS
     Dosage: 1000 MG, 2 X DAY, PO
     Route: 048
     Dates: start: 20111201, end: 20120820

REACTIONS (9)
  - DIZZINESS [None]
  - NAUSEA [None]
  - RASH PRURITIC [None]
  - PRODUCT QUALITY ISSUE [None]
  - MALAISE [None]
  - CONFUSIONAL STATE [None]
  - ASTHENIA [None]
  - DIARRHOEA [None]
  - DIABETES MELLITUS INADEQUATE CONTROL [None]
